FAERS Safety Report 6586125-3 (Version None)
Quarter: 2010Q1

REPORT INFORMATION
  Report Type: 
  Country: None (occurrence: None)
  Receive Date: 20100217
  Receipt Date: 20090504
  Transmission Date: 20100710
  Serious: No
  Sender: FDA-Public Use
  Company Number: US-ALLERGAN-0900006US

PATIENT
  Age: 72 Year
  Sex: Male

DRUGS (10)
  1. BOTOX COSMETIC [Suspect]
     Indication: SKIN WRINKLING
     Dosage: 32 UNITS, SINGLE
     Route: 030
     Dates: start: 20081211, end: 20081211
  2. LIPITOR [Concomitant]
  3. TOPROL-XL [Concomitant]
  4. ASPIRIN [Concomitant]
  5. ZETIA [Concomitant]
  6. NEXIUM [Concomitant]
  7. COLCHICINE [Concomitant]
  8. XALATAN [Concomitant]
  9. TIMOPTIC [Concomitant]
  10. CELEBREX [Concomitant]

REACTIONS (7)
  - ACCIDENTAL EXPOSURE [None]
  - HEADACHE [None]
  - HYPOAESTHESIA FACIAL [None]
  - MADAROSIS [None]
  - MUSCLE TWITCHING [None]
  - NAUSEA [None]
  - PHOTOSENSITIVITY REACTION [None]
